FAERS Safety Report 10377115 (Version 3)
Quarter: 2015Q1

REPORT INFORMATION
  Report Type: Spontaneous
  Country: IT (occurrence: IT)
  Receive Date: 20140812
  Receipt Date: 20150128
  Transmission Date: 20150720
  Serious: Yes (Hospitalization)
  Sender: FDA-Public Use
  Company Number: IT-ROCHE-1447966

PATIENT
  Age: 70 Year
  Sex: Female

DRUGS (8)
  1. MABTHERA [Suspect]
     Active Substance: RITUXIMAB
     Dosage: 600 MG WITH CHOP IN PAST
     Route: 042
     Dates: start: 20130822, end: 20131020
  2. VINBLASTINA [Suspect]
     Active Substance: VINBLASTINE
     Indication: NON-HODGKIN^S LYMPHOMA
     Dosage: 1 MG/ML 1 VIAL OF 10 ML
     Route: 042
     Dates: start: 20110501, end: 20140213
  3. ZOFRAN [Concomitant]
     Active Substance: ONDANSETRON HYDROCHLORIDE
  4. FARMORUBICIN [Suspect]
     Active Substance: EPIRUBICIN HYDROCHLORIDE
     Indication: NON-HODGKIN^S LYMPHOMA
     Dosage: 50 MG 1 VIAL WITH POWDER
     Route: 042
     Dates: start: 20131105, end: 20140213
  5. ENDOXAN BAXTER [Suspect]
     Active Substance: CYCLOPHOSPHAMIDE
     Indication: NON-HODGKIN^S LYMPHOMA
     Dosage: 500 MG 1 TYPE III GLASS VIAL OF 500 MG
     Route: 042
     Dates: start: 20131105, end: 20140213
  6. MABTHERA [Suspect]
     Active Substance: RITUXIMAB
     Indication: NON-HODGKIN^S LYMPHOMA
     Dosage: 1 VIAL OF 500 MG
     Route: 042
     Dates: start: 20131105, end: 20140213
  7. ESOMEPRAZOLE [Concomitant]
     Active Substance: ESOMEPRAZOLE
  8. SOLDESAM [Concomitant]
     Active Substance: DEXAMETHASONE

REACTIONS (1)
  - Ventricular hypokinesia [Recovered/Resolved]

NARRATIVE: CASE EVENT DATE: 20140409
